FAERS Safety Report 16771264 (Version 1)
Quarter: 2019Q3

REPORT INFORMATION
  Report Type: Spontaneous
  Country: US (occurrence: US)
  Receive Date: 20190904
  Receipt Date: 20190904
  Transmission Date: 20191005
  Serious: No
  Sender: FDA-Public Use
  Company Number: US-GLAXOSMITHKLINE-US2019159090

PATIENT
  Sex: Female

DRUGS (1)
  1. BENLYSTA [Suspect]
     Active Substance: BELIMUMAB
     Indication: PRODUCT USED FOR UNKNOWN INDICATION
     Dosage: 200 MG, UNK
     Route: 058
     Dates: start: 20190808

REACTIONS (6)
  - Parosmia [Recovered/Resolved]
  - Nausea [Recovered/Resolved]
  - Ill-defined disorder [Unknown]
  - Pain [Recovered/Resolved]
  - Malaise [Unknown]
  - Dysgeusia [Recovered/Resolved]
